FAERS Safety Report 6831518-X (Version None)
Quarter: 2010Q3

REPORT INFORMATION
  Report Type: 
  Country: None (occurrence: None)
  Receive Date: 20100712
  Receipt Date: 20100628
  Transmission Date: 20110219
  Serious: Yes (Other)
  Sender: FDA-Public Use
  Company Number: PHEH2008US10984

PATIENT
  Sex: Female

DRUGS (51)
  1. ELIDEL [Suspect]
     Indication: ECZEMA
     Route: 061
  2. PROTOPIC [Suspect]
     Indication: ECZEMA
  3. AZITHROMYCIN [Suspect]
  4. AUGMENTIN '125' [Concomitant]
  5. ATUSS DM [Concomitant]
  6. CHEMOTHERAPEUTICS NOS [Concomitant]
  7. RADIATION THERAPY [Concomitant]
  8. TRIAMCINOLONE [Concomitant]
  9. SALEX [Concomitant]
  10. LEVSIN [Concomitant]
  11. ULTRACET [Concomitant]
  12. ADVAIR DISKUS 100/50 [Concomitant]
  13. SINGULAIR [Concomitant]
  14. ALLEGRA [Concomitant]
  15. VIOXX [Concomitant]
     Dosage: 25 MG, UNK
  16. VENTOLIN [Concomitant]
  17. ATIVAN [Concomitant]
  18. PERCOCET [Concomitant]
  19. EMLA [Concomitant]
  20. MIDRIN [Concomitant]
  21. DILAUDID [Concomitant]
  22. IMITREX ^CERENEX^ [Concomitant]
  23. ZOFRAN [Concomitant]
  24. COMPAZINE [Concomitant]
  25. PREDNISONE [Concomitant]
  26. APREPITANT [Concomitant]
  27. NEULASTA [Concomitant]
  28. DARBEPOETIN ALFA [Concomitant]
  29. PEPCID [Concomitant]
  30. HYDROCODONE BITARTRATE AND ACETAMINOPHEN [Concomitant]
  31. LUNESTA [Concomitant]
  32. SUBOXONE [Concomitant]
  33. AMBIEN [Concomitant]
  34. CARMOL [Concomitant]
  35. DEPO-PROVERA [Concomitant]
  36. ALBUTEROL [Concomitant]
  37. MEDROXYPROGESTERONE [Concomitant]
  38. LORAZEPAM [Concomitant]
  39. EFFEXOR [Concomitant]
  40. FLUOXETINE HCL [Concomitant]
  41. TOPICORT [Concomitant]
  42. LAMISIL                            /00992601/ [Concomitant]
  43. TURMERIC [Concomitant]
  44. BROMELAINS [Concomitant]
  45. FIORICET [Concomitant]
  46. TOPAMAX [Concomitant]
  47. XYZAL [Concomitant]
  48. NEURONTIN [Concomitant]
  49. DEXAMETHASONE ACETATE [Concomitant]
  50. EMEND [Concomitant]
  51. NASACORT [Concomitant]

REACTIONS (56)
  - ABSCESS [None]
  - ALOPECIA [None]
  - ANAPLASTIC LARGE CELL LYMPHOMA T- AND NULL-CELL TYPES [None]
  - ANXIETY DISORDER [None]
  - ARTHRALGIA [None]
  - ARTHRITIS [None]
  - ASTHENIA [None]
  - AXILLARY MASS [None]
  - AXILLARY PAIN [None]
  - BACK PAIN [None]
  - BONE PAIN [None]
  - BREAST LUMP REMOVAL [None]
  - BRONCHITIS [None]
  - CELLULITIS [None]
  - CHEST DISCOMFORT [None]
  - CHEST PAIN [None]
  - DENTAL NECROSIS [None]
  - DENTAL OPERATION [None]
  - DEPRESSION [None]
  - DRUG DEPENDENCE [None]
  - DYSPHAGIA [None]
  - ERYTHEMA [None]
  - FATIGUE [None]
  - GENERAL PHYSICAL HEALTH DETERIORATION [None]
  - HEADACHE [None]
  - HYPERHIDROSIS [None]
  - INFLUENZA [None]
  - INSOMNIA [None]
  - INTERVERTEBRAL DISC PROTRUSION [None]
  - IRRITABILITY [None]
  - LIPOMA [None]
  - LYMPHADENECTOMY [None]
  - LYMPHADENITIS [None]
  - LYMPHADENOPATHY [None]
  - LYMPHANGITIS [None]
  - LYMPHOEDEMA [None]
  - MAMMOPLASTY [None]
  - MIGRAINE [None]
  - MUCOSAL INFLAMMATION [None]
  - NECK PAIN [None]
  - NEOPLASM [None]
  - NON-HODGKIN'S LYMPHOMA [None]
  - OEDEMA PERIPHERAL [None]
  - OVARIAN MASS [None]
  - PAIN [None]
  - PAIN IN JAW [None]
  - PNEUMONIA STAPHYLOCOCCAL [None]
  - SCOLIOSIS [None]
  - SEBACEOUS GLAND DISORDER [None]
  - SENSITIVITY OF TEETH [None]
  - SINUSITIS [None]
  - SPINAL CORD COMPRESSION [None]
  - SPINAL CORD INJURY [None]
  - SPINAL OSTEOARTHRITIS [None]
  - SWELLING [None]
  - TUMOUR EXCISION [None]
